FAERS Safety Report 18493274 (Version 3)
Quarter: 2020Q4

REPORT INFORMATION
  Report Type: Other
  Country: US (occurrence: US)
  Receive Date: 20201112
  Receipt Date: 20201228
  Transmission Date: 20210114
  Serious: Yes (Hospitalization)
  Sender: FDA-Public Use
  Company Number: US-ROCHE-2711301

PATIENT
  Age: 54 Year
  Sex: Female
  Weight: 87.17 kg

DRUGS (2)
  1. OCREVUS [Suspect]
     Active Substance: OCRELIZUMAB
     Indication: RELAPSING-REMITTING MULTIPLE SCLEROSIS
     Route: 065
     Dates: start: 201906, end: 202001
  2. OCREVUS [Suspect]
     Active Substance: OCRELIZUMAB
     Route: 065
     Dates: start: 202009

REACTIONS (6)
  - Mental impairment [Unknown]
  - Speech disorder [Unknown]
  - Drug ineffective [Unknown]
  - COVID-19 [Recovering/Resolving]
  - Amnesia [Unknown]
  - Weight increased [Unknown]

NARRATIVE: CASE EVENT DATE: 20201009
